FAERS Safety Report 9940147 (Version 1)
Quarter: 2014Q1

REPORT INFORMATION
  Report Type: Report from Study
  Country: US (occurrence: US)
  Receive Date: 20140303
  Receipt Date: 20140303
  Transmission Date: 20141002
  Serious: No
  Sender: FDA-Public Use
  Company Number: US-ABBVIE-13P-163-1032601-00

PATIENT
  Sex: Male

DRUGS (4)
  1. HUMIRA [Suspect]
     Indication: PRODUCT USED FOR UNKNOWN INDICATION
  2. SYNTHROID [Concomitant]
     Dosage: DAILY
  3. METHOTREXATE [Concomitant]
     Dosage: 10 TABS WEEKLY
  4. FOLIC ACID [Concomitant]
     Dosage: DAILY

REACTIONS (3)
  - Injection site erythema [Unknown]
  - Papule [Unknown]
  - Pruritus [Unknown]
